FAERS Safety Report 7937996-7 (Version None)
Quarter: 2011Q4

REPORT INFORMATION
  Report Type: 
  Country: None (occurrence: None)
  Receive Date: 20111123
  Receipt Date: 20111117
  Transmission Date: 20120403
  Serious: Yes (Hospitalization)
  Sender: FDA-Public Use
  Company Number: US-ACTELION-A-US2011-47103

PATIENT

DRUGS (5)
  1. EPOPROSTENOL SODIUM [Suspect]
     Dosage: 4 NG/KG, PER MIN
     Route: 042
     Dates: start: 20110323
  2. EPOPROSTENOL SODIUM [Suspect]
     Dosage: 10 NG/KG, PER MIN
     Route: 042
  3. EPOPROSTENOL SODIUM [Suspect]
     Indication: PULMONARY ARTERIAL HYPERTENSION
     Dosage: 7 NG/KG, PER MIN
     Route: 042
  4. TRACLEER [Suspect]
     Indication: PULMONARY ARTERIAL HYPERTENSION
     Dosage: UNK
     Route: 048
     Dates: start: 20030305
  5. COUMADIN [Concomitant]

REACTIONS (10)
  - IRRITABLE BOWEL SYNDROME [None]
  - CHEST PAIN [None]
  - DIZZINESS [None]
  - NAUSEA [None]
  - SYNCOPE [None]
  - PRESYNCOPE [None]
  - ANXIETY [None]
  - MALAISE [None]
  - DYSPNOEA [None]
  - PULMONARY HYPERTENSION [None]
